FAERS Safety Report 24928139 (Version 1)
Quarter: 2025Q1

REPORT INFORMATION
  Report Type: Spontaneous
  Country: CN (occurrence: CN)
  Receive Date: 20250205
  Receipt Date: 20250205
  Transmission Date: 20250408
  Serious: Yes (Death, Other)
  Sender: GLAND PHARMA LTD
  Company Number: CN-GLANDPHARMA-CN-2025GLNLIT00176

PATIENT
  Age: 60 Year
  Sex: Male

DRUGS (22)
  1. CARBOPLATIN [Suspect]
     Active Substance: CARBOPLATIN
     Indication: Small cell lung cancer
     Route: 042
     Dates: start: 202203
  2. CARBOPLATIN [Suspect]
     Active Substance: CARBOPLATIN
     Indication: Paraneoplastic syndrome
     Route: 042
     Dates: start: 202303
  3. CARBOPLATIN [Suspect]
     Active Substance: CARBOPLATIN
     Route: 042
     Dates: start: 202303
  4. CISPLATIN [Suspect]
     Active Substance: CISPLATIN
     Indication: Paraneoplastic syndrome
     Route: 042
     Dates: start: 2023
  5. CISPLATIN [Suspect]
     Active Substance: CISPLATIN
     Indication: Small cell lung cancer
     Route: 042
     Dates: start: 2023
  6. CISPLATIN [Suspect]
     Active Substance: CISPLATIN
     Route: 042
     Dates: start: 2023
  7. IRINOTECAN HYDROCHLORIDE [Suspect]
     Active Substance: IRINOTECAN HYDROCHLORIDE
     Indication: Small cell lung cancer
     Route: 042
     Dates: start: 2023
  8. IRINOTECAN HYDROCHLORIDE [Suspect]
     Active Substance: IRINOTECAN HYDROCHLORIDE
     Indication: Paraneoplastic syndrome
     Route: 042
     Dates: start: 202303
  9. IRINOTECAN HYDROCHLORIDE [Suspect]
     Active Substance: IRINOTECAN HYDROCHLORIDE
     Route: 042
     Dates: start: 2023
  10. ETOPOSIDE [Suspect]
     Active Substance: ETOPOSIDE
     Indication: Small cell lung cancer
     Route: 048
     Dates: start: 202203
  11. ETOPOSIDE [Suspect]
     Active Substance: ETOPOSIDE
     Indication: Paraneoplastic syndrome
     Route: 048
     Dates: start: 202210
  12. DURVALUMAB [Suspect]
     Active Substance: DURVALUMAB
     Indication: Paraneoplastic syndrome
     Route: 042
     Dates: start: 202203
  13. DURVALUMAB [Suspect]
     Active Substance: DURVALUMAB
     Indication: Small cell lung cancer
     Route: 042
     Dates: start: 202210
  14. BEVACIZUMAB [Suspect]
     Active Substance: BEVACIZUMAB
     Route: 065
     Dates: start: 2023
  15. SERPLULIMAB [Suspect]
     Active Substance: SERPLULIMAB
     Indication: Small cell lung cancer
     Route: 042
     Dates: start: 202303
  16. SERPLULIMAB [Suspect]
     Active Substance: SERPLULIMAB
     Indication: Paraneoplastic syndrome
     Route: 042
     Dates: start: 2023
  17. CATEQUENTINIB [Concomitant]
     Active Substance: CATEQUENTINIB
     Indication: Small cell lung cancer
     Route: 048
     Dates: start: 2023
  18. CATEQUENTINIB [Concomitant]
     Active Substance: CATEQUENTINIB
  19. OCTREOTIDE [Concomitant]
     Active Substance: OCTREOTIDE
     Indication: Product used for unknown indication
     Route: 065
  20. TRILACICLIB [Concomitant]
     Active Substance: TRILACICLIB
     Route: 065
     Dates: start: 202303
  21. TRILACICLIB [Concomitant]
     Active Substance: TRILACICLIB
     Route: 065
     Dates: start: 2023
  22. MIFEPRISTONE [Concomitant]
     Active Substance: MIFEPRISTONE
     Indication: Product used for unknown indication
     Route: 065

REACTIONS (5)
  - Cardiac failure chronic [Fatal]
  - Respiratory disorder [Fatal]
  - Myelosuppression [Fatal]
  - Pyrexia [Unknown]
  - Product use in unapproved indication [Unknown]
